FAERS Safety Report 7142163-3 (Version None)
Quarter: 2010Q4

REPORT INFORMATION
  Report Type: 
  Country: None (occurrence: None)
  Receive Date: 20101207
  Receipt Date: 20101123
  Transmission Date: 20110411
  Serious: Yes (Other)
  Sender: FDA-Public Use
  Company Number: US-ROCHE-744044

PATIENT
  Sex: Female

DRUGS (13)
  1. BONIVA [Suspect]
     Route: 065
  2. ACTONEL [Suspect]
     Route: 065
  3. FOSAMAX [Suspect]
     Route: 065
  4. EVISTA [Suspect]
     Route: 065
  5. PLAVIX [Suspect]
     Route: 065
  6. CALCIUM [Suspect]
     Route: 065
  7. COREG [Concomitant]
     Dosage: 12.5 MG HALF IN THE MORNING AND HALF IN THE AFTERNOON.
  8. ATACAND HCT [Concomitant]
     Dosage: 16/12.5 MG ONE IN THE MORNING
  9. CRESTOR [Concomitant]
  10. OMEPRAZOLE [Concomitant]
  11. VANTIN [Concomitant]
  12. TYLENOL-500 [Concomitant]
  13. VITAMIN B-12 [Concomitant]

REACTIONS (6)
  - CONSTIPATION [None]
  - EPISTAXIS [None]
  - FUNGAL INFECTION [None]
  - INFLUENZA LIKE ILLNESS [None]
  - MUSCLE SPASMS [None]
  - NAUSEA [None]
